FAERS Safety Report 22099529 (Version 1)
Quarter: 2023Q1

REPORT INFORMATION
  Report Type: Report from Study
  Country: CA (occurrence: CA)
  Receive Date: 20230315
  Receipt Date: 20230315
  Transmission Date: 20230418
  Serious: Yes (Other)
  Sender: FDA-Public Use
  Company Number: CA-TAKEDA-2019TUS044454

PATIENT
  Age: 46 Year
  Sex: Female

DRUGS (16)
  1. VEDOLIZUMAB [Suspect]
     Active Substance: VEDOLIZUMAB
     Indication: Crohn^s disease
     Dosage: 300 MILLIGRAM
     Route: 042
     Dates: start: 20180326
  2. VEDOLIZUMAB [Suspect]
     Active Substance: VEDOLIZUMAB
     Dosage: 300 MILLIGRAM, Q6WEEKS
     Route: 042
     Dates: start: 20180815
  3. VEDOLIZUMAB [Suspect]
     Active Substance: VEDOLIZUMAB
     Dosage: 300 MILLIGRAM, Q6WEEKS
     Route: 042
  4. VEDOLIZUMAB [Suspect]
     Active Substance: VEDOLIZUMAB
     Dosage: 300 MILLIGRAM, Q4WEEKS
     Route: 042
     Dates: start: 20200311
  5. SYNTHROID [Concomitant]
     Active Substance: LEVOTHYROXINE SODIUM
     Dosage: 150 MICROGRAM, QD
     Route: 048
  6. ASACOL [Concomitant]
     Active Substance: MESALAMINE
     Dosage: UNK
  7. EFFEXOR [Concomitant]
     Active Substance: VENLAFAXINE HYDROCHLORIDE
     Dosage: UNK
  8. GABAPENTIN [Concomitant]
     Active Substance: GABAPENTIN
     Dosage: UNK
  9. VITAMIN D NOS [Concomitant]
     Active Substance: VITAMIN D NOS
     Dosage: UNK UNK, QD
     Route: 048
  10. IMOVANE [Concomitant]
     Active Substance: ZOPICLONE
     Dosage: UNK
  11. DILAUDID [Concomitant]
     Active Substance: HYDROMORPHONE HYDROCHLORIDE
     Dosage: UNK, QID
     Route: 048
  12. VITAMIN B12 [Concomitant]
     Active Substance: CYANOCOBALAMIN
     Dosage: 1000 MICROGRAM
     Route: 048
  13. ZOPICLONE [Concomitant]
     Active Substance: ZOPICLONE
     Dosage: 7.5 MILLIGRAM, QD
     Route: 048
  14. CALCIUM [Concomitant]
     Active Substance: CALCIUM
     Dosage: 500 MILLIGRAM
     Route: 048
  15. LORAZEPAM [Concomitant]
     Active Substance: LORAZEPAM
     Dosage: 1 MILLIGRAM, QD
     Route: 048
  16. RITUXAN [Concomitant]
     Active Substance: RITUXIMAB
     Dosage: UNK
     Route: 042

REACTIONS (3)
  - Granulomatosis with polyangiitis [Not Recovered/Not Resolved]
  - Microscopic polyangiitis [Not Recovered/Not Resolved]
  - Off label use [Unknown]

NARRATIVE: CASE EVENT DATE: 20180815
